FAERS Safety Report 13439051 (Version 1)
Quarter: 2017Q2

REPORT INFORMATION
  Report Type: Spontaneous
  Country: US (occurrence: US)
  Receive Date: 20170413
  Receipt Date: 20170413
  Transmission Date: 20170830
  Serious: No
  Sender: FDA-Public Use
  Company Number: US-ROCHE-1070575

PATIENT
  Age: 75 Year
  Sex: Male

DRUGS (7)
  1. HEPARIN [Concomitant]
     Active Substance: HEPARIN SODIUM
  2. MOXIFLOXACIN. [Concomitant]
     Active Substance: MOXIFLOXACIN
     Route: 042
  3. MOXIFLOXACIN. [Concomitant]
     Active Substance: MOXIFLOXACIN
     Dosage: 1 WEEK
     Route: 048
  4. MOXIFLOXACIN. [Concomitant]
     Active Substance: MOXIFLOXACIN
     Route: 048
  5. GENTAMICIN. [Concomitant]
     Active Substance: GENTAMICIN
     Dosage: FOR 2 WEEKS
     Route: 042
  6. CEFTRIAXONE. [Suspect]
     Active Substance: CEFTRIAXONE
     Indication: BETA HAEMOLYTIC STREPTOCOCCAL INFECTION
     Dosage: FOR 2 WEEKS
     Route: 042
  7. MOXIFLOXACIN. [Concomitant]
     Active Substance: MOXIFLOXACIN
     Dosage: FOR 1 WEEK
     Route: 042

REACTIONS (1)
  - Granulocytopenia [Recovered/Resolved]
